FAERS Safety Report 11932962 (Version 1)
Quarter: 2016Q1

REPORT INFORMATION
  Report Type: Spontaneous
  Country: US (occurrence: US)
  Receive Date: 20160120
  Receipt Date: 20160120
  Transmission Date: 20160526
  Serious: No
  Sender: FDA-Public Use
  Company Number: US-BRISTOL-MYERS SQUIBB COMPANY-BMS-2016-002502

PATIENT
  Sex: Female

DRUGS (1)
  1. SPRYCEL [Suspect]
     Active Substance: DASATINIB
     Indication: CHRONIC MYELOID LEUKAEMIA
     Dosage: 140 MG, QWK
     Route: 065

REACTIONS (6)
  - Pleural effusion [Unknown]
  - Neuropathy peripheral [Unknown]
  - Mood swings [Unknown]
  - Bone pain [Unknown]
  - Fatigue [Unknown]
  - Somnolence [Unknown]
